FAERS Safety Report 15932141 (Version 1)
Quarter: 2019Q1

REPORT INFORMATION
  Report Type: Spontaneous
  Country: PR (occurrence: PR)
  Receive Date: 20190207
  Receipt Date: 20190207
  Transmission Date: 20190417
  Serious: No
  Sender: FDA-Public Use
  Company Number: PR-PFIZER INC-2019052274

PATIENT
  Age: 74 Year
  Sex: Female
  Weight: 48.98 kg

DRUGS (1)
  1. SUTENT [Suspect]
     Active Substance: SUNITINIB MALATE
     Indication: NEUROENDOCRINE TUMOUR
     Dosage: 50 MG, CYCLIC (1 CAPSULE, DAILY FOR 28 DAYS/ 14 OFF)
     Route: 048
     Dates: start: 20190123

REACTIONS (8)
  - Fatigue [Unknown]
  - Tachycardia [Recovered/Resolved]
  - Abdominal pain upper [Unknown]
  - Dizziness [Unknown]
  - Appetite disorder [Unknown]
  - Dysgeusia [Unknown]
  - Vision blurred [Unknown]
  - Headache [Unknown]

NARRATIVE: CASE EVENT DATE: 2019
